FAERS Safety Report 9664355 (Version 1)
Quarter: 2013Q4

REPORT INFORMATION
  Report Type: Spontaneous
  Country: US (occurrence: None)
  Receive Date: 20131030
  Receipt Date: 20131030
  Transmission Date: 20140711
  Serious: Yes (Hospitalization)
  Sender: FDA-Public Use
  Company Number: None

PATIENT
  Age: 81 Year
  Sex: Female
  Weight: 77.4 kg

DRUGS (12)
  1. AMOXICILLIN/CLAVULANATE [Suspect]
     Indication: SINUSITIS
     Dosage: 1     BID  ORAL
     Route: 048
     Dates: start: 20130903, end: 20130913
  2. ATENOLOL [Concomitant]
  3. LEVOXYL [Concomitant]
  4. PREVACID [Concomitant]
  5. CALCIUM [Concomitant]
  6. ASPIRIN [Concomitant]
  7. VITAMIN D3 [Concomitant]
  8. LISINOPRIL [Concomitant]
  9. CITALOPRAM [Concomitant]
  10. VENOTLIN [Concomitant]
  11. ALLEGRA [Concomitant]
  12. NASOCORT [Concomitant]

REACTIONS (4)
  - Fatigue [None]
  - Nausea [None]
  - Rash pruritic [None]
  - Jaundice [None]
